FAERS Safety Report 13182970 (Version 4)
Quarter: 2017Q3

REPORT INFORMATION
  Report Type: Spontaneous
  Country: DE (occurrence: DE)
  Receive Date: 20170203
  Receipt Date: 20170721
  Transmission Date: 20171127
  Serious: Yes (Disabling, Other)
  Sender: FDA-Public Use
  Company Number: DE-AMGEN-DEUSP2017016417

PATIENT
  Age: 61 Year
  Sex: Female
  Weight: 69 kg

DRUGS (3)
  1. PROLIA [Suspect]
     Active Substance: DENOSUMAB
     Indication: OSTEOPOROSIS
     Dosage: 60 MG, Q6MO
     Route: 058
     Dates: start: 201509, end: 201609
  2. PROLIA [Suspect]
     Active Substance: DENOSUMAB
     Indication: BONE LOSS
  3. CORTISONE [Concomitant]
     Active Substance: CORTISONE\HYDROCORTISONE
     Indication: SYSTEMIC LUPUS ERYTHEMATOSUS

REACTIONS (3)
  - Foot fracture [Unknown]
  - Off label use [Unknown]
  - Femur fracture [Recovering/Resolving]

NARRATIVE: CASE EVENT DATE: 201509
